FAERS Safety Report 10152562 (Version 1)
Quarter: 2014Q2

REPORT INFORMATION
  Report Type: Spontaneous
  Country: US (occurrence: None)
  Receive Date: 20140502
  Receipt Date: 20140502
  Transmission Date: 20141212
  Serious: Yes (Other)
  Sender: FDA-Public Use
  Company Number: None

PATIENT
  Age: 58 Year
  Sex: Female
  Weight: 71.4 kg

DRUGS (1)
  1. AFINITOR 10MG NOVARTIS [Suspect]
     Indication: PANCREATIC CARCINOMA
     Route: 048
     Dates: start: 20140412

REACTIONS (1)
  - Skin exfoliation [None]
